FAERS Safety Report 24884001 (Version 1)
Quarter: 2025Q1

REPORT INFORMATION
  Report Type: Spontaneous
  Country: ES (occurrence: ES)
  Receive Date: 20250124
  Receipt Date: 20250124
  Transmission Date: 20250409
  Serious: Yes (Death, Hospitalization, Other)
  Sender: ALEXION PHARMACEUTICALS
  Company Number: None

PATIENT
  Age: 63 Year

DRUGS (2)
  1. QUETIAPINE [Interacting]
     Active Substance: QUETIAPINE
     Indication: Agitation
  2. PIRFENIDONE [Interacting]
     Active Substance: PIRFENIDONE
     Indication: Acute interstitial pneumonitis

REACTIONS (5)
  - Pneumonia [Fatal]
  - Respiratory failure [Fatal]
  - Agranulocytosis [Recovered/Resolved]
  - Neutropenia [Unknown]
  - Off label use [Recovered/Resolved]
